FAERS Safety Report 8545114 (Version 4)
Quarter: 2012Q4

REPORT INFORMATION
  Report Type: 
  Country: JP (occurrence: JP)
  Receive Date: 20120503
  Receipt Date: 20121001
  Transmission Date: 20130627
  Serious: Yes (Other)
  Sender: FDA-Public Use
  Company Number: JP-JNJFOC-20120413282

PATIENT
  Age: 75 Year
  Sex: Female

DRUGS (1)
  1. DUROTEP MT [Suspect]
     Indication: CANCER PAIN
     Route: 062
     Dates: start: 20120415

REACTIONS (3)
  - Neuroleptic malignant syndrome [Recovered/Resolved]
  - Urinary tract infection [Recovered/Resolved]
  - Overdose [Unknown]
